FAERS Safety Report 10146349 (Version 1)
Quarter: 2014Q2

REPORT INFORMATION
  Report Type: Spontaneous
  Country: GB (occurrence: GB)
  Receive Date: 20140501
  Receipt Date: 20140501
  Transmission Date: 20141212
  Serious: Yes (Other)
  Sender: FDA-Public Use
  Company Number: GB-SA-2014SA050911

PATIENT
  Age: 37 Year
  Sex: Male
  Weight: 51 kg

DRUGS (7)
  1. RIFAMPICIN [Suspect]
     Indication: TUBERCULOSIS
     Dosage: 600MG/750MG DAILY
     Route: 048
     Dates: start: 201401
  2. CLOZAPINE [Interacting]
     Indication: SCHIZOPHRENIA
     Route: 065
  3. CYCLIZINE [Concomitant]
  4. ETHAMBUTOL [Concomitant]
  5. ISONIAZIDE [Concomitant]
  6. PYRAZINAMIDE [Concomitant]
  7. VITAMIN B6 [Concomitant]

REACTIONS (2)
  - Antipsychotic drug level decreased [Recovering/Resolving]
  - Inhibitory drug interaction [Unknown]
